FAERS Safety Report 20363621 (Version 1)
Quarter: 2022Q1

REPORT INFORMATION
  Report Type: Spontaneous
  Country: US (occurrence: US)
  Receive Date: 20220121
  Receipt Date: 20220121
  Transmission Date: 20220423
  Serious: No
  Sender: FDA-Public Use
  Company Number: US-HORIZON THERAPEUTICS-HZN-2022-000102

PATIENT

DRUGS (1)
  1. PENNSAID [Suspect]
     Active Substance: DICLOFENAC SODIUM
     Indication: Product used for unknown indication
     Route: 065

REACTIONS (2)
  - Pain [Unknown]
  - Product supply issue [Unknown]
